FAERS Safety Report 23562199 (Version 1)
Quarter: 2024Q1

REPORT INFORMATION
  Report Type: Spontaneous
  Country: US (occurrence: US)
  Receive Date: 20240226
  Receipt Date: 20240226
  Transmission Date: 20240409
  Serious: Yes (Other)
  Sender: FDA-Public Use
  Company Number: US-JNJFOC-20240244438

PATIENT
  Age: 61 Year
  Sex: Female

DRUGS (1)
  1. TECVAYLI [Suspect]
     Active Substance: TECLISTAMAB-CQYV
     Indication: Plasma cell myeloma
     Dosage: LAST DOSE OF TECLISTAMAB WAS ON 01-FEB-2024. CYCLE-6 DAY-15
     Route: 065

REACTIONS (2)
  - Neutrophil count decreased [Unknown]
  - Cough [Unknown]

NARRATIVE: CASE EVENT DATE: 20240215
